FAERS Safety Report 5388423-8 (Version None)
Quarter: 2007Q3

REPORT INFORMATION
  Report Type: 
  Country: None (occurrence: None)
  Receive Date: 20070716
  Receipt Date: 20070702
  Transmission Date: 20080115
  Serious: Yes (Other)
  Sender: FDA-Public Use
  Company Number: US-ELI_LILLY_AND_COMPANY-US200706006357

PATIENT
  Age: 10 Year
  Sex: Male

DRUGS (3)
  1. STRATTERA [Suspect]
     Indication: OPPOSITIONAL DEFIANT DISORDER
     Dosage: 10 MG, DAILY (1/D)
     Dates: start: 20070620, end: 20070620
  2. NASONEX [Concomitant]
  3. CLARITIN [Concomitant]

REACTIONS (10)
  - ABASIA [None]
  - CHEST PAIN [None]
  - CIRCULATORY COLLAPSE [None]
  - HALLUCINATION [None]
  - HEADACHE [None]
  - NAUSEA [None]
  - PAIN IN EXTREMITY [None]
  - PYREXIA [None]
  - SEROTONIN SYNDROME [None]
  - VERTIGO [None]
